FAERS Safety Report 17322521 (Version 1)
Quarter: 2020Q1

REPORT INFORMATION
  Report Type: Spontaneous
  Country: US (occurrence: US)
  Receive Date: 20200124
  Receipt Date: 20200124
  Transmission Date: 20200409
  Serious: Yes (Hospitalization)
  Sender: FDA-Public Use
  Company Number: None

PATIENT
  Age: 76 Year
  Sex: Female
  Weight: 63 kg

DRUGS (6)
  1. RANITIDINE HCI 300 MG [Suspect]
     Active Substance: RANITIDINE HYDROCHLORIDE
     Indication: GASTROOESOPHAGEAL REFLUX DISEASE
     Route: 048
  2. CARVEDILOL 12.5 MG [Concomitant]
     Active Substance: CARVEDILOL
  3. FUROSEMIDE 40 MG [Concomitant]
     Active Substance: FUROSEMIDE
  4. ATORVASTATIN 80 MG [Concomitant]
     Active Substance: ATORVASTATIN
  5. EZETIMBE 10 MG [Concomitant]
  6. TOLTERODINE 2 MG [Concomitant]

REACTIONS (3)
  - Renal cancer [None]
  - Cholecystectomy [None]
  - Product contamination [None]

NARRATIVE: CASE EVENT DATE: 20181002
